FAERS Safety Report 12580146 (Version 1)
Quarter: 2016Q3

REPORT INFORMATION
  Report Type: Spontaneous
  Country: US (occurrence: US)
  Receive Date: 20160721
  Receipt Date: 20160721
  Transmission Date: 20161109
  Serious: No
  Sender: FDA-Public Use
  Company Number: GXBR2015US002729

PATIENT
  Sex: Male
  Weight: 73.47 kg

DRUGS (1)
  1. LOVASTATIN TABLETS, USP [Suspect]
     Active Substance: LOVASTATIN
     Indication: BLOOD CHOLESTEROL INCREASED
     Dosage: UNK DF, UNK
     Route: 048

REACTIONS (2)
  - Muscle spasms [Unknown]
  - Pain [Unknown]
